FAERS Safety Report 16081927 (Version 1)
Quarter: 2019Q1

REPORT INFORMATION
  Report Type: Spontaneous
  Country: PT (occurrence: PT)
  Receive Date: 20190317
  Receipt Date: 20190317
  Transmission Date: 20190418
  Serious: Yes (Disabling, Other)
  Sender: FDA-Public Use
  Company Number: PT-ROCHE-2223222

PATIENT
  Age: 40 Year
  Sex: Female

DRUGS (4)
  1. ALECENSA [Suspect]
     Active Substance: ALECTINIB HYDROCHLORIDE
     Indication: LUNG ADENOCARCINOMA
     Route: 048
     Dates: start: 20170719, end: 20170908
  2. ALECENSA [Suspect]
     Active Substance: ALECTINIB HYDROCHLORIDE
     Route: 048
     Dates: start: 20180716
  3. ALECENSA [Suspect]
     Active Substance: ALECTINIB HYDROCHLORIDE
     Route: 048
     Dates: start: 20171206, end: 20180716
  4. ALECENSA [Suspect]
     Active Substance: ALECTINIB HYDROCHLORIDE
     Indication: NON-SMALL CELL LUNG CANCER
     Route: 048
     Dates: start: 20170908, end: 20171206

REACTIONS (5)
  - Intentional product use issue [Unknown]
  - Fatigue [Recovering/Resolving]
  - Face oedema [Recovering/Resolving]
  - Off label use [Unknown]
  - Eye pruritus [Recovering/Resolving]

NARRATIVE: CASE EVENT DATE: 20170908
